FAERS Safety Report 8160650-6 (Version None)
Quarter: 2012Q1

REPORT INFORMATION
  Report Type: 
  Country: None (occurrence: None)
  Receive Date: 20120223
  Receipt Date: 20120216
  Transmission Date: 20120608
  Serious: Yes (Death, Hospitalization)
  Sender: FDA-Public Use
  Company Number: FR-ROCHE-1031781

PATIENT
  Sex: Female
  Weight: 80 kg

DRUGS (9)
  1. ZELBORAF [Suspect]
     Indication: METASTATIC MALIGNANT MELANOMA
     Route: 048
     Dates: start: 20111228
  2. OXYCONTIN [Concomitant]
     Indication: PAIN
  3. IMOVANE [Concomitant]
     Indication: INSOMNIA
     Route: 048
  4. VALPROATE SODIUM [Concomitant]
     Indication: EPILEPSY
     Route: 048
  5. XANAX [Concomitant]
     Indication: ANXIETY
  6. RISPERDAL [Concomitant]
     Indication: MENTAL DISORDER
     Route: 048
  7. MIRTAZAPINE [Concomitant]
     Indication: MENTAL DISORDER
     Route: 048
  8. ZELBORAF [Suspect]
     Indication: METASTASES TO LUNG
  9. ZELBORAF [Suspect]
     Indication: RESPIRATORY FAILURE

REACTIONS (4)
  - LUNG DISORDER [None]
  - THROMBOCYTOPENIA [None]
  - RASH MACULO-PAPULAR [None]
  - MICROANGIOPATHY [None]
